FAERS Safety Report 7054378-3 (Version None)
Quarter: 2010Q4

REPORT INFORMATION
  Report Type: 
  Country: None (occurrence: None)
  Receive Date: 20101015
  Receipt Date: 20100930
  Transmission Date: 20110411
  Serious: Yes (Death)
  Sender: FDA-Public Use
  Company Number: 1000014686

PATIENT
  Age: 65 Year
  Sex: Male
  Weight: 82 kg

DRUGS (7)
  1. ESCITALOPRAM [Suspect]
     Indication: DEPRESSION
     Dosage: 5 MG (5 MG,1 IN 1 D)
     Dates: start: 20100311, end: 20100510
  2. PLAVIX [Suspect]
  3. ATORVASTATIN CALCIUM [Concomitant]
  4. ACEBUTOLOL (ACEBUTOLOL) (ACEBUTOLOL) [Concomitant]
  5. CORDARONE (AMIODARONE) (AMIODARONE) [Concomitant]
  6. COAPROVEL (KARVEA HCT) (KARVEA HCT) [Concomitant]
  7. AMLODIPINE BESYLATE [Concomitant]

REACTIONS (7)
  - CYANOSIS [None]
  - DRUG INTERACTION [None]
  - FALL [None]
  - HAEMORRHAGE [None]
  - HAEMORRHAGIC STROKE [None]
  - PULMONARY EMBOLISM [None]
  - SUDDEN DEATH [None]
